FAERS Safety Report 7437222-1 (Version None)
Quarter: 2011Q2

REPORT INFORMATION
  Report Type: 
  Country: None (occurrence: None)
  Receive Date: 20110426
  Receipt Date: 20110415
  Transmission Date: 20111010
  Serious: Yes (Death, Hospitalization)
  Sender: FDA-Public Use
  Company Number: DE-BRISTOL-MYERS SQUIBB COMPANY-15683550

PATIENT
  Age: 71 Year
  Sex: Male

DRUGS (4)
  1. CARBOPLATIN [Suspect]
     Indication: NON-SMALL CELL LUNG CANCER
     Dosage: 1DF:AUC 5(503.15MG) LAST INF:10MAR2011 NO OF INF:4
     Route: 042
     Dates: start: 20110106
  2. GEMCITABINE [Suspect]
     Indication: NON-SMALL CELL LUNG CANCER
     Dosage: LAST INF:17MAR2011 NO OF INF:8 2676MG
     Route: 042
     Dates: start: 20110106
  3. CETUXIMAB [Suspect]
     Indication: NON-SMALL CELL LUNG CANCER
     Dosage: ONCE EVERY 3 WKS WITH WEEKLY(557.5MG) LAST INF:17MAR2011 NO OF INF:8
     Route: 042
     Dates: start: 20110106
  4. UNASYN [Concomitant]

REACTIONS (2)
  - BONE MARROW FAILURE [None]
  - CHRONIC OBSTRUCTIVE PULMONARY DISEASE [None]
